FAERS Safety Report 19872199 (Version 1)
Quarter: 2021Q3

REPORT INFORMATION
  Report Type: Spontaneous
  Country: US (occurrence: US)
  Receive Date: 20210921
  Receipt Date: 20210921
  Transmission Date: 20211014
  Serious: No
  Sender: FDA-Public Use
  Company Number: None

PATIENT
  Age: 83 Year
  Sex: Female

DRUGS (1)
  1. CAPECITABINE TAB 500MG [Suspect]
     Active Substance: CAPECITABINE
     Dosage: OTHER
     Route: 048
     Dates: start: 202108

REACTIONS (6)
  - Skin exfoliation [None]
  - Cystitis [None]
  - Erythema [None]
  - Pain in extremity [None]
  - Therapy change [None]
  - Fatigue [None]

NARRATIVE: CASE EVENT DATE: 20210919
